FAERS Safety Report 16392687 (Version 2)
Quarter: 2019Q3

REPORT INFORMATION
  Report Type: Spontaneous
  Country: FR (occurrence: FR)
  Receive Date: 20190605
  Receipt Date: 20190822
  Transmission Date: 20191004
  Serious: Yes (Hospitalization, Other)
  Sender: FDA-Public Use
  Company Number: FR-ASTRAZENECA-2019SE76214

PATIENT
  Age: 43 Year
  Sex: Female
  Weight: 48 kg

DRUGS (9)
  1. CALCIDIA [Suspect]
     Active Substance: CALCIUM CARBONATE
     Indication: PRODUCT USED FOR UNKNOWN INDICATION
     Dosage: 1.54G UNKNOWN
     Route: 048
     Dates: start: 20190322, end: 20190404
  2. FOLIC ACID ARROW [Concomitant]
     Active Substance: FOLIC ACID
     Dosage: 5.0MG UNKNOWN
     Dates: start: 20190201
  3. CORTANCYL [Suspect]
     Active Substance: PREDNISONE
     Indication: PRODUCT USED FOR UNKNOWN INDICATION
     Dosage: 35.0MG UNKNOWN
     Route: 048
     Dates: start: 20190201, end: 20190404
  4. ESOMEPRAZOLE. [Suspect]
     Active Substance: ESOMEPRAZOLE MAGNESIUM
     Indication: PRODUCT USED FOR UNKNOWN INDICATION
     Dosage: 40.0MG UNKNOWN
     Route: 048
     Dates: start: 20190201, end: 20190404
  5. RENVELA [Suspect]
     Active Substance: SEVELAMER CARBONATE
     Indication: PRODUCT USED FOR UNKNOWN INDICATION
     Dosage: 1600.0MG UNKNOWN
     Route: 048
     Dates: start: 20190322, end: 20190404
  6. TITANOREINE [Concomitant]
     Active Substance: CARRAGEENAN\TITANIUM\ZINC
     Dosage: 2
  7. FUROSEMIDE. [Suspect]
     Active Substance: FUROSEMIDE
     Indication: PRODUCT USED FOR UNKNOWN INDICATION
     Dosage: 500.0MG UNKNOWN
     Route: 048
     Dates: start: 20190201, end: 20190404
  8. ARANESP [Concomitant]
     Active Substance: DARBEPOETIN ALFA
     Dosage: 80.0UG/INHAL UNKNOWN
  9. OFLOXACINE ALMUS [Suspect]
     Active Substance: OFLOXACIN
     Indication: BACTERIAL PYELONEPHRITIS
     Route: 048
     Dates: start: 20190316, end: 20190323

REACTIONS (2)
  - Chronic kidney disease [Recovered/Resolved]
  - Agranulocytosis [Recovered/Resolved]

NARRATIVE: CASE EVENT DATE: 20190401
